FAERS Safety Report 6992334-1 (Version None)
Quarter: 2010Q3

REPORT INFORMATION
  Report Type: 
  Country: None (occurrence: None)
  Receive Date: 20100917
  Receipt Date: 20100908
  Transmission Date: 20110219
  Serious: Yes (Hospitalization)
  Sender: FDA-Public Use
  Company Number: JP-ASTRAZENECA-2010SE43453

PATIENT
  Age: 34 Year
  Sex: Female

DRUGS (2)
  1. BUPIVACAINE HCL [Suspect]
     Indication: ANAESTHESIA
     Route: 037
  2. PENTAZOCINE [Concomitant]
     Route: 030

REACTIONS (1)
  - MENINGITIS CHEMICAL [None]
